FAERS Safety Report 20739894 (Version 2)
Quarter: 2022Q2

REPORT INFORMATION
  Report Type: Report from Study
  Country: FR (occurrence: FR)
  Receive Date: 20220422
  Receipt Date: 20220427
  Transmission Date: 20220721
  Serious: Yes (Hospitalization, Other)
  Sender: FDA-Public Use
  Company Number: FR-ASTELLAS-2022US014617

PATIENT
  Age: 60 Year
  Sex: Female
  Weight: 59 kg

DRUGS (18)
  1. TACROLIMUS [Suspect]
     Active Substance: TACROLIMUS
     Indication: Renal transplant
     Dosage: UNK UNK, ONCE DAILY
     Route: 065
     Dates: start: 20170603, end: 20170603
  2. CELLCEPT [Concomitant]
     Active Substance: MYCOPHENOLATE MOFETIL
     Indication: Immunosuppression
     Dosage: 2000 UNIT NOT REPORTED, TOTAL DAILY DOSE
     Route: 065
     Dates: start: 20170206, end: 20180209
  3. CELLCEPT [Concomitant]
     Active Substance: MYCOPHENOLATE MOFETIL
     Dosage: 1000 UNIT NOT REPORTED, TOTAL DAILY DOSE
     Route: 065
     Dates: start: 20180210, end: 20180606
  4. CELLCEPT [Concomitant]
     Active Substance: MYCOPHENOLATE MOFETIL
     Dosage: 1000 UNIT NOT REPORTED, TOTAL DAILY DOSE
     Route: 065
     Dates: start: 20201003, end: 20201214
  5. PREDNISONE [Concomitant]
     Active Substance: PREDNISONE
     Indication: Immunosuppression
     Dosage: 35 UNIT NOT REPORTED, TOTAL DAILY DOSE
     Route: 065
     Dates: start: 20170222, end: 20170303
  6. PREDNISONE [Concomitant]
     Active Substance: PREDNISONE
     Dosage: 30 UNIT NOT REPORTED, TOTAL DAILY DOSE
     Route: 065
     Dates: start: 20170304, end: 20170314
  7. PREDNISONE [Concomitant]
     Active Substance: PREDNISONE
     Dosage: 20 UNIT NOT REPORTED, TOTAL DAILY DOSE
     Route: 065
     Dates: start: 20170315, end: 20170321
  8. PREDNISONE [Concomitant]
     Active Substance: PREDNISONE
     Dosage: 17.5 UNIT NOT REPORTED, TOTAL DAILY DOSE
     Route: 065
     Dates: start: 20170322, end: 20170331
  9. PREDNISONE [Concomitant]
     Active Substance: PREDNISONE
     Dosage: 12.5 UNIT NOT REPORTED, TOTAL DAILY DOSE
     Route: 065
     Dates: start: 20170401, end: 20170404
  10. PREDNISONE [Concomitant]
     Active Substance: PREDNISONE
     Dosage: 10 UNIT NOT REPORTED, TOTAL DAILY DOSE
     Route: 065
     Dates: start: 20170405, end: 20170526
  11. PREDNISONE [Concomitant]
     Active Substance: PREDNISONE
     Dosage: 7.5 UNIT NOT REPORTED, TOTAL DAILY DOSE
     Route: 065
     Dates: start: 20170527, end: 20170621
  12. PREDNISONE [Concomitant]
     Active Substance: PREDNISONE
     Dosage: 5 UNIT NOT REPORTED, TOTAL DAILY DOSE
     Route: 065
     Dates: start: 20170622, end: 20171222
  13. PREDNISONE [Concomitant]
     Active Substance: PREDNISONE
     Dosage: 10 UNIT NOT REPORTED, TOTAL DAILY DOSE
     Route: 065
     Dates: start: 20171223, end: 20180206
  14. PREDNISONE [Concomitant]
     Active Substance: PREDNISONE
     Dosage: 5 UNIT NOT REPORTED, TOTAL DAILY DOSE
     Route: 065
     Dates: start: 20180207, end: 20201004
  15. CERTICAN [Concomitant]
     Active Substance: EVEROLIMUS
     Indication: Immunosuppression
     Dosage: 1 UNIT NOT REPORTED, TOTAL DAILY DOSE.
     Route: 065
     Dates: start: 20180607, end: 20180823
  16. CERTICAN [Concomitant]
     Active Substance: EVEROLIMUS
     Indication: Skin papilloma
     Dosage: 1.5 UNIT NOT REPORTED, TOTAL DAILY DOSE
     Route: 065
     Dates: start: 20180824, end: 20201002
  17. CERTICAN [Concomitant]
     Active Substance: EVEROLIMUS
     Dosage: 1.5 UNIT NOT REPORTED, TOTAL DAILY DOSE.
     Route: 065
     Dates: start: 20201215, end: 20220131
  18. CERTICAN [Concomitant]
     Active Substance: EVEROLIMUS
     Dosage: 1 UNIT NOT REPORTED, TOTAL DAILY DOSE
     Route: 065
     Dates: start: 20220201

REACTIONS (2)
  - Iron deficiency [Recovered/Resolved]
  - Renal graft infection [Recovered/Resolved]

NARRATIVE: CASE EVENT DATE: 20210614
